FAERS Safety Report 6072033-3 (Version None)
Quarter: 2009Q1

REPORT INFORMATION
  Report Type: 
  Country: None (occurrence: None)
  Receive Date: 20090205
  Receipt Date: 20090205
  Transmission Date: 20090719
  Serious: Yes (Death, Hospitalization)
  Sender: FDA-Public Use
  Company Number: None

PATIENT
  Sex: Female
  Weight: 82.1 kg

DRUGS (13)
  1. TAXOL [Suspect]
     Dosage: 350 MG
     Dates: end: 20081022
  2. CARBOPLATIN [Suspect]
     Dosage: 476 MG
     Dates: end: 20081022
  3. AVELOX [Concomitant]
  4. COMPAZINE [Concomitant]
  5. DEXAMETHASONE TAB [Concomitant]
  6. DIFLUCAN [Concomitant]
  7. DOCUSATE SODIUM [Concomitant]
  8. LASIX [Concomitant]
  9. NYSTATIN [Concomitant]
  10. PERCOCET [Concomitant]
  11. PHENERGAN SUPPOSITORY [Concomitant]
  12. REGLAN [Concomitant]
  13. ZOFRAN [Concomitant]

REACTIONS (1)
  - WOUND INFECTION [None]
